FAERS Safety Report 6861306-X (Version None)
Quarter: 2010Q3

REPORT INFORMATION
  Report Type: 
  Country: None (occurrence: None)
  Receive Date: 20100715
  Receipt Date: 20100705
  Transmission Date: 20110219
  Serious: Yes (Hospitalization)
  Sender: FDA-Public Use
  Company Number: 2010SP037183

PATIENT
  Age: 40 Year
  Sex: Female

DRUGS (2)
  1. PEG-INTRON [Suspect]
     Indication: HEPATITIS C
     Dosage: 80 MG; QW
     Dates: start: 20081118, end: 20090106
  2. REBETOL [Suspect]
     Indication: HEPATITIS C
     Dosage: 800 MG
     Dates: start: 20081106, end: 20081223

REACTIONS (5)
  - DYSPNOEA [None]
  - EYE PRURITUS [None]
  - FACE OEDEMA [None]
  - PRURITUS [None]
  - RASH [None]
